FAERS Safety Report 9443034 (Version 2)
Quarter: 2013Q3

REPORT INFORMATION
  Report Type: Spontaneous
  Country: JP (occurrence: JP)
  Receive Date: 20130806
  Receipt Date: 20130809
  Transmission Date: 20140515
  Serious: Yes (Hospitalization, Other)
  Sender: FDA-Public Use
  Company Number: PHHY2013JP083735

PATIENT
  Sex: Female

DRUGS (2)
  1. DIOVAN [Suspect]
     Dosage: 40 MG, DAILY
     Route: 048
     Dates: end: 2012
  2. DIOVAN [Suspect]
     Dosage: 80 MG, DAILY
     Route: 048
     Dates: start: 2012, end: 2013

REACTIONS (4)
  - Hepatic function abnormal [Unknown]
  - Dizziness [Unknown]
  - Nausea [Unknown]
  - Drug ineffective [Unknown]
